FAERS Safety Report 9493184 (Version 2)
Quarter: 2014Q3

REPORT INFORMATION
  Report Type: Spontaneous
  Country: US (occurrence: US)
  Receive Date: 20130902
  Receipt Date: 20140908
  Transmission Date: 20150326
  Serious: Yes (Life-Threatening, Hospitalization, Other)
  Sender: FDA-Public Use
  Company Number: US-BRISTOL-MYERS SQUIBB COMPANY-19209469

PATIENT
  Age: 22 Year
  Sex: Male
  Weight: 83.9 kg

DRUGS (11)
  1. NOVOLIN 70/30 [Concomitant]
     Active Substance: INSULIN HUMAN
     Dosage: INJECT 26 UNITS IN THE MORNING AND 38 UNITS IN THE EVENING.
     Route: 058
  2. FAMOTIDINE TABS 40 MG [Concomitant]
     Dosage: 1 TABS.
     Route: 048
  3. ABILIFY [Suspect]
     Active Substance: ARIPIPRAZOLE
     Indication: NERVOUSNESS
     Dosage: 5 MG TABS SPILLTED INTO TO AND 2.5MG WAS TAKEN.CP?ONE TABLET
     Route: 048
  4. GLYBURIDE. [Concomitant]
     Active Substance: GLYBURIDE
     Indication: DIABETES MELLITUS
     Dosage: 1 TABLET.?1 DF = 3 MG TABS.
     Route: 048
  5. BENZATROPINE MESILATE [Concomitant]
     Active Substance: BENZTROPINE
     Dosage: 0.5 MG TAB.?1 TAB AT BEDTIME.?2 MG TAB.?1 TO TABS AT BEDTIME.
     Route: 048
  6. LOSARTAN [Concomitant]
     Active Substance: LOSARTAN
     Dosage: 1 TABS.
     Route: 048
  7. HALOPERIDOL. [Concomitant]
     Active Substance: HALOPERIDOL
     Dosage: 1/2 TAB AT BEDTIME TO START AND THEN INCREASE TO 1 TAB AT BED TIME.?5 MG TABS.?2 TABS AT BED TIME.
     Route: 048
  8. PRAVASTATIN SODIUM. [Concomitant]
     Active Substance: PRAVASTATIN SODIUM
     Indication: BLOOD CHOLESTEROL
     Dosage: 1 DF = 20 MG TABS.?ONE TABLET AT BED TIME FOR CHOLESTEROL.
     Route: 048
  9. ONDANSETRON HCL [Concomitant]
     Active Substance: ONDANSETRON HYDROCHLORIDE
     Indication: NAUSEA
     Dosage: 1  DF = 4 MG.?1 TAB FOR 4 DAYS.
     Route: 048
  10. CLONAZEPAM. [Concomitant]
     Active Substance: CLONAZEPAM
     Indication: ANXIETY
     Dosage: 0.5 MG 1 TABS AS NEEDED.?1 MG TAB NDC#00185-0064-10.
     Route: 048
  11. LISINOPRIL. [Concomitant]
     Active Substance: LISINOPRIL
     Indication: HYPERTENSION
     Dosage: 1 DF = 5 MG TAB.?10 MG TAB, NDC#68180-0514-03.?1 TABS.?10 MG TABS.
     Route: 048

REACTIONS (7)
  - Hyperlipidaemia [Unknown]
  - Wrong technique in drug usage process [Unknown]
  - Abnormal behaviour [Recovered/Resolved]
  - Thirst [Recovered/Resolved]
  - Blood glucose increased [Recovered/Resolved]
  - Type 1 diabetes mellitus [Unknown]
  - Hypertension [Unknown]
